FAERS Safety Report 15656951 (Version 1)
Quarter: 2018Q4

REPORT INFORMATION
  Report Type: Spontaneous
  Country: US (occurrence: US)
  Receive Date: 20181126
  Receipt Date: 20181126
  Transmission Date: 20190205
  Serious: Yes (Disabling)
  Sender: FDA-Public Use
  Company Number: None

PATIENT
  Age: 44 Year
  Sex: Female

DRUGS (8)
  1. GILENYA [Suspect]
     Active Substance: FINGOLIMOD HYDROCHLORIDE
     Indication: MULTIPLE SCLEROSIS
     Route: 048
     Dates: start: 20121004, end: 20130303
  2. OCREVUS [Concomitant]
     Active Substance: OCRELIZUMAB
  3. ASPIRIN. [Concomitant]
     Active Substance: ASPIRIN
  4. VITAMIN D3 [Concomitant]
     Active Substance: CHOLECALCIFEROL
  5. AMANTADINE. [Concomitant]
     Active Substance: AMANTADINE HYDROCHLORIDE
  6. TOVIAZ [Concomitant]
     Active Substance: FESOTERODINE FUMARATE
  7. MVI [Concomitant]
     Active Substance: VITAMINS
  8. CALCIUM WITH D [Concomitant]
     Active Substance: CALCIUM\VITAMIN D

REACTIONS (2)
  - White blood cell count decreased [None]
  - Disease progression [None]

NARRATIVE: CASE EVENT DATE: 20121004
